FAERS Safety Report 19268828 (Version 5)
Quarter: 2022Q1

REPORT INFORMATION
  Report Type: Report from Study
  Country: FR (occurrence: None)
  Receive Date: 20210518
  Receipt Date: 20220224
  Transmission Date: 20220424
  Serious: Yes (Life-Threatening)
  Sender: FDA-Public Use
  Company Number: FR-ROCHE-2829789

PATIENT
  Age: 72 Year
  Sex: Male
  Weight: 60 kg

DRUGS (8)
  1. ATEZOLIZUMAB [Suspect]
     Active Substance: ATEZOLIZUMAB
     Indication: Bladder transitional cell carcinoma
     Dosage: (21 [PLUS-MINUS 2] DAYS) FOR 1 YEAR (18 CYCLES AS A MAXIMUM)?DATE OF LAST ADMINISTRATION WAS ON 15/A
     Route: 041
     Dates: start: 20200305, end: 20201001
  2. BCG VACCINE [Suspect]
     Active Substance: BCG VACCINE
     Indication: Bladder transitional cell carcinoma
     Route: 065
     Dates: start: 20200305, end: 20201015
  3. ATORVASTATIN [Concomitant]
     Active Substance: ATORVASTATIN
  4. ESOMEPRAZOLE [Concomitant]
     Active Substance: ESOMEPRAZOLE
  5. KARDEGIC [Concomitant]
     Active Substance: ASPIRIN DL-LYSINE
     Indication: Hypertension
     Dates: start: 20200201
  6. ALBUTEROL SULFATE [Concomitant]
     Active Substance: ALBUTEROL SULFATE
     Indication: Chronic obstructive pulmonary disease
     Dates: start: 2019
  7. HYALURONATE SODIUM\TREHALOSE [Concomitant]
     Active Substance: HYALURONATE SODIUM\TREHALOSE
     Indication: Ocular hypertension
     Dates: start: 2007
  8. INDACATEROL [Concomitant]
     Active Substance: INDACATEROL
     Indication: Chronic obstructive pulmonary disease
     Dates: start: 2019

REACTIONS (1)
  - Hepatic cytolysis [Recovered/Resolved]

NARRATIVE: CASE EVENT DATE: 20210215
